FAERS Safety Report 5567420-3 (Version None)
Quarter: 2007Q4

REPORT INFORMATION
  Report Type: 
  Country: None (occurrence: None)
  Receive Date: 20071214
  Receipt Date: 20071129
  Transmission Date: 20080405
  Serious: Yes (Other)
  Sender: FDA-Public Use
  Company Number: 164904ISR

PATIENT
  Age: 44 Year
  Sex: Male

DRUGS (5)
  1. CISPLATIN [Suspect]
     Indication: NON-SMALL CELL LUNG CANCER
     Dosage: 162 MG (CYCLICAL)
     Route: 042
     Dates: start: 20060221, end: 20060623
  2. VINORELBINE BITARTRATE [Suspect]
     Indication: NON-SMALL CELL LUNG CANCER
     Dosage: 40 MG (CYCLICAL)
     Route: 042
     Dates: start: 20060221, end: 20060623
  3. GRANISETRON  HCL [Concomitant]
  4. METOCLOPRAMIDE HYDROCHLORIDE [Concomitant]
  5. DEXAMETHASONE SODIUM PHOSPHATE [Concomitant]

REACTIONS (3)
  - ADVERSE REACTION [None]
  - BLISTER [None]
  - VASCULITIS [None]
